FAERS Safety Report 8378883-2 (Version None)
Quarter: 2012Q2

REPORT INFORMATION
  Report Type: 
  Country: None (occurrence: None)
  Receive Date: 20120522
  Receipt Date: 20120522
  Transmission Date: 20120825
  Serious: Yes (Other)
  Sender: FDA-Public Use
  Company Number: None

PATIENT
  Age: 70 Year
  Sex: Male
  Weight: 74.8435 kg

DRUGS (2)
  1. ADVAIR HFA [Suspect]
     Indication: ASTHMA
     Dosage: 1 PUFF 5
     Dates: start: 20090915, end: 20120301
  2. ASMANEX TWISTHALER [Suspect]
     Indication: ASTHMA
     Dosage: 1 PUFF 7
     Dates: start: 20120410, end: 20120514

REACTIONS (4)
  - RASH [None]
  - VISION BLURRED [None]
  - URTICARIA [None]
  - SKIN ULCER [None]
